FAERS Safety Report 5341392-9 (Version None)
Quarter: 2007Q2

REPORT INFORMATION
  Report Type: 
  Country: None (occurrence: None)
  Receive Date: 20070404
  Receipt Date: 20061205
  Transmission Date: 20071010
  Serious: Yes (Other)
  Sender: FDA-Public Use
  Company Number: 2006132870

PATIENT
  Age: 30 Year
  Sex: Female
  Weight: 52.1637 kg

DRUGS (4)
  1. GEODON [Suspect]
     Dosage: (40 MG)
     Dates: start: 20061026
  2. ATIVAN [Concomitant]
  3. TOPAMAX [Concomitant]
  4. PROZAC [Concomitant]

REACTIONS (3)
  - DYSTONIA [None]
  - HYPERSENSITIVITY [None]
  - PANIC REACTION [None]
